FAERS Safety Report 16645444 (Version 1)
Quarter: 2019Q3

REPORT INFORMATION
  Report Type: Report from Study
  Country: None (occurrence: US)
  Receive Date: 20190729
  Receipt Date: 20190729
  Transmission Date: 20191004
  Serious: Yes (Hospitalization, Other)
  Sender: FDA-Public Use
  Company Number: US-ABBVIE-19K-165-2682877-00

PATIENT
  Age: 65 Year
  Sex: Female

DRUGS (2)
  1. VENCLEXTA [Suspect]
     Active Substance: VENETOCLAX
     Indication: PLASMA CELL MYELOMA
     Route: 048
     Dates: start: 20190202, end: 2019
  2. VENCLEXTA [Suspect]
     Active Substance: VENETOCLAX
     Route: 048
     Dates: start: 2019

REACTIONS (23)
  - Transfusion [Unknown]
  - Staphylococcal infection [Unknown]
  - Deep vein thrombosis [Unknown]
  - Hypotension [Unknown]
  - Ejection fraction decreased [Unknown]
  - Off label use [Unknown]
  - Hospitalisation [Unknown]
  - Decreased appetite [Unknown]
  - Gastrointestinal haemorrhage [Unknown]
  - Endotracheal intubation [Unknown]
  - Weight decreased [Unknown]
  - Immunodeficiency [Unknown]
  - Pancytopenia [Unknown]
  - Respiratory failure [Unknown]
  - Pneumonia [Unknown]
  - Tachycardia [Unknown]
  - Epistaxis [Unknown]
  - Productive cough [Unknown]
  - Hyperhidrosis [Unknown]
  - Oesophagitis [Unknown]
  - Vena cava filter insertion [Unknown]
  - Chromaturia [Unknown]
  - Haemoptysis [Unknown]

NARRATIVE: CASE EVENT DATE: 2019
